FAERS Safety Report 4809049-8 (Version None)
Quarter: 2005Q4

REPORT INFORMATION
  Report Type: 
  Country: None (occurrence: None)
  Receive Date: 20051021
  Receipt Date: 20050111
  Transmission Date: 20060501
  Serious: Yes (Other)
  Sender: FDA-Public Use
  Company Number: GBS050116379

PATIENT
  Age: 46 Year
  Sex: Male
  Weight: 117 kg

DRUGS (3)
  1. ZYPREXA [Suspect]
     Indication: DELUSIONAL DISORDER, PERSECUTORY TYPE
     Dosage: 15 MG
     Dates: start: 20030227, end: 20050314
  2. CHLORPROMAZINE [Concomitant]
  3. RISPERIDONE [Concomitant]

REACTIONS (4)
  - ATELECTASIS [None]
  - CHEST X-RAY ABNORMAL [None]
  - DEEP VEIN THROMBOSIS [None]
  - PULMONARY EMBOLISM [None]
